FAERS Safety Report 9746174 (Version 2)
Quarter: 2013Q4

REPORT INFORMATION
  Report Type: Spontaneous
  Country: GB (occurrence: GB)
  Receive Date: 20131211
  Receipt Date: 20131211
  Transmission Date: 20140711
  Serious: No
  Sender: FDA-Public Use
  Company Number: GB-GILEAD-2009-0025970

PATIENT
  Age: 65 Year
  Sex: Male

DRUGS (3)
  1. ATRIPLA [Suspect]
     Dates: start: 20090325
  2. TRUVADA [Concomitant]
     Dates: start: 200810
  3. EFAVIRENZ [Concomitant]
     Dates: start: 200810

REACTIONS (3)
  - Paraesthesia [Recovering/Resolving]
  - Abnormal dreams [Recovered/Resolved]
  - Nightmare [Unknown]
